FAERS Safety Report 6431220-2 (Version None)
Quarter: 2009Q4

REPORT INFORMATION
  Report Type: 
  Country: None (occurrence: None)
  Receive Date: 20091106
  Receipt Date: 20091029
  Transmission Date: 20100525
  Serious: Yes (Other)
  Sender: FDA-Public Use
  Company Number: US-ABBOTT-09P-163-0606007-00

PATIENT
  Age: 19 Year
  Sex: Female

DRUGS (11)
  1. ADALIMUMAB [Suspect]
     Indication: CROHN'S DISEASE
     Dosage: TITRATED TO 40 MG EVERY 2 WKS
  2. CORTICOSTEROIDS [Concomitant]
     Indication: CROHN'S DISEASE
  3. METRONIDAZOLE [Concomitant]
     Indication: CROHN'S DISEASE
  4. SULFASALAZINE [Concomitant]
     Indication: CROHN'S DISEASE
  5. MERCAPTOPURINE [Concomitant]
     Indication: CROHN'S DISEASE
  6. INFLIXIMAB [Concomitant]
     Indication: CROHN'S DISEASE
  7. PREDNISONE [Concomitant]
     Indication: CROHN'S DISEASE
  8. PREDNISONE [Concomitant]
     Dosage: TAPERED
  9. PREDNISONE [Concomitant]
     Route: 048
  10. PREDNISONE [Concomitant]
     Route: 048
  11. METHOTREXATE [Concomitant]
     Indication: CROHN'S DISEASE
     Route: 058

REACTIONS (3)
  - OESOPHAGEAL DISORDER [None]
  - ORAL DISORDER [None]
  - PHARYNGEAL DISORDER [None]
